FAERS Safety Report 4687439-4 (Version None)
Quarter: 2005Q2

REPORT INFORMATION
  Report Type: 
  Country: None (occurrence: None)
  Receive Date: 20050609
  Receipt Date: 20050609
  Transmission Date: 20051028
  Serious: Yes (Hospitalization)
  Sender: FDA-Public Use
  Company Number: None

PATIENT
  Age: 58 Year
  Sex: Female
  Weight: 72.7 kg

DRUGS (11)
  1. TAXOTERE [Suspect]
     Indication: BREAST CANCER STAGE IV
     Dosage: 59 MG WEEKLY INTRAVENOU
     Route: 042
     Dates: start: 20050401, end: 20050531
  2. REFLUDAN [Suspect]
     Dosage: 0.7 ML Q12HOURS SUBCUTANEO
     Route: 058
     Dates: start: 20050402, end: 20050608
  3. TRAZODONE [Concomitant]
  4. PROPRANOLOL [Concomitant]
  5. TRIAVIL [Concomitant]
  6. PROTONIX [Concomitant]
  7. XANAX [Concomitant]
  8. HYDROCODONE BITARTRATE + ACETAMINOPHEN [Concomitant]
  9. ZOFRAN AND COMPAZINE [Concomitant]
  10. ACYCLOVIR [Concomitant]
  11. LEXAPRO [Concomitant]

REACTIONS (3)
  - CHILLS [None]
  - PAIN [None]
  - PYREXIA [None]
